FAERS Safety Report 19374437 (Version 3)
Quarter: 2021Q2

REPORT INFORMATION
  Report Type: Spontaneous
  Country: CA (occurrence: CA)
  Receive Date: 20210603
  Receipt Date: 20210625
  Transmission Date: 20210717
  Serious: Yes (Death, Life-Threatening)
  Sender: FDA-Public Use
  Company Number: CA-BEH-2021132458

PATIENT
  Age: 78 Year
  Sex: Female

DRUGS (2)
  1. ALBUREX [Suspect]
     Active Substance: ALBUMIN HUMAN
     Indication: DIALYSIS
     Dosage: ANOTHER VIAL
     Route: 042
     Dates: start: 20210303, end: 20210303
  2. ALBUREX [Suspect]
     Active Substance: ALBUMIN HUMAN
     Indication: ACUTE RESPIRATORY DISTRESS SYNDROME
     Dosage: 4/4 VIAL 100ML
     Route: 065
     Dates: start: 20210304, end: 20210304

REACTIONS (7)
  - Transfusion-related acute lung injury [Fatal]
  - Pulmonary oedema [Fatal]
  - Respiratory distress [Fatal]
  - Tachypnoea [Fatal]
  - Tachycardia [Fatal]
  - Hypertension [Fatal]
  - Dyspnoea [Fatal]

NARRATIVE: CASE EVENT DATE: 20210304
